FAERS Safety Report 4508346-3 (Version None)
Quarter: 2004Q4

REPORT INFORMATION
  Report Type: 
  Country: None (occurrence: None)
  Receive Date: 20041123
  Receipt Date: 20040115
  Transmission Date: 20050328
  Serious: No
  Sender: FDA-Public Use
  Company Number: US-GLAXOSMITHKLINE-A0493453A

PATIENT
  Age: 48 Year
  Sex: Female

DRUGS (11)
  1. WELLBUTRIN SR [Suspect]
     Indication: DEPRESSION
     Dosage: 150MG PER DAY
     Route: 048
  2. FLONASE [Suspect]
  3. HYDROCHLOROTHIAZIDE [Concomitant]
  4. PREMARIN [Concomitant]
  5. TIAZAC [Concomitant]
  6. ALTACE [Concomitant]
  7. VIOXX [Concomitant]
  8. MAXAIR [Concomitant]
  9. ADVAIR [Concomitant]
  10. NASONEX [Concomitant]
  11. SYNTHROID [Concomitant]

REACTIONS (3)
  - EPISTAXIS [None]
  - HYPERTENSION [None]
  - PALPITATIONS [None]
